FAERS Safety Report 14075851 (Version 1)
Quarter: 2017Q4

REPORT INFORMATION
  Report Type: Spontaneous
  Country: US (occurrence: US)
  Receive Date: 20171010
  Receipt Date: 20171010
  Transmission Date: 20180321
  Serious: No
  Sender: FDA-Public Use
  Company Number: US-MYLANLABS-2017010066

PATIENT
  Sex: Male
  Weight: 97.52 kg

DRUGS (1)
  1. MUSE [Suspect]
     Active Substance: ALPROSTADIL
     Dosage: 500 ?G,PRN
     Route: 066

REACTIONS (3)
  - Wrong technique in product usage process [Recovered/Resolved]
  - No adverse event [Not Recovered/Not Resolved]
  - Expired product administered [Recovered/Resolved]
